FAERS Safety Report 5010250-1 (Version None)
Quarter: 2006Q2

REPORT INFORMATION
  Report Type: 
  Country: None (occurrence: None)
  Receive Date: 20060524
  Receipt Date: 20060517
  Transmission Date: 20061013
  Serious: Yes (Hospitalization)
  Sender: FDA-Public Use
  Company Number: GB-MERCK-0605GBR00087

PATIENT
  Age: 73 Year
  Sex: Female

DRUGS (12)
  1. SINGULAIR [Suspect]
     Route: 048
  2. CARBOCYSTEINE [Suspect]
     Route: 048
     Dates: start: 20060420
  3. DOXYCYCLINE [Suspect]
     Route: 048
     Dates: start: 20060419, end: 20060424
  4. AMINOPHYLLINE [Suspect]
     Route: 048
     Dates: end: 20060424
  5. ALBUTEROL SULFATE AND IPRATROPIUM BROMIDE [Concomitant]
     Route: 055
  6. RISEDRONATE SODIUM [Concomitant]
     Route: 048
  7. VALSARTAN [Concomitant]
     Route: 048
  8. OMEPRAZOLE [Concomitant]
     Route: 048
  9. ASPIRIN [Concomitant]
     Route: 048
  10. FLUTICASONE PROPIONATE AND SALMETEROL XINAFOATE [Concomitant]
     Route: 055
  11. FLUVASTATIN SODIUM [Concomitant]
     Route: 048
  12. TRIMETHOPRIM [Concomitant]
     Route: 048
     Dates: start: 20060414, end: 20060421

REACTIONS (5)
  - ABDOMINAL PAIN UPPER [None]
  - DRUG LEVEL ABOVE THERAPEUTIC [None]
  - FLUSHING [None]
  - HYPOTENSION [None]
  - SUPRAVENTRICULAR TACHYCARDIA [None]
